FAERS Safety Report 12311264 (Version 1)
Quarter: 2016Q2

REPORT INFORMATION
  Report Type: Spontaneous
  Country: JP (occurrence: JP)
  Receive Date: 20160427
  Receipt Date: 20160427
  Transmission Date: 20160815
  Serious: Yes (Other)
  Sender: FDA-Public Use
  Company Number: JP-PFIZER INC-2016224936

PATIENT

DRUGS (4)
  1. ZYVOX [Suspect]
     Active Substance: LINEZOLID
     Route: 048
  2. MEROPENEM. [Concomitant]
     Active Substance: MEROPENEM
  3. ZYVOX [Suspect]
     Active Substance: LINEZOLID
     Dosage: UNK
     Route: 042
  4. HABEKACIN /01069401/ [Concomitant]

REACTIONS (3)
  - Vomiting [Recovering/Resolving]
  - Pyrexia [Unknown]
  - Pneumonia [Unknown]

NARRATIVE: CASE EVENT DATE: 20160416
